FAERS Safety Report 24153820 (Version 1)
Quarter: 2024Q3

REPORT INFORMATION
  Report Type: Spontaneous
  Country: IN (occurrence: IN)
  Receive Date: 20240730
  Receipt Date: 20240730
  Transmission Date: 20241017
  Serious: Yes (Hospitalization)
  Sender: PFIZER
  Company Number: IN-PFIZER INC-PV202400097953

PATIENT
  Age: 71 Year
  Sex: Male

DRUGS (1)
  1. INLYTA [Suspect]
     Active Substance: AXITINIB
     Dosage: 5 MG, ALTERNATE DAY
     Route: 048
     Dates: start: 20240220

REACTIONS (7)
  - Urosepsis [Recovered/Resolved]
  - Meningitis [Recovered/Resolved]
  - Seizure [Recovered/Resolved]
  - Hypoacusis [Unknown]
  - Gait disturbance [Unknown]
  - Head discomfort [Unknown]
  - Off label use [Unknown]
